FAERS Safety Report 14015110 (Version 1)
Quarter: 2017Q3

REPORT INFORMATION
  Report Type: Spontaneous
  Country: US (occurrence: None)
  Receive Date: 20170927
  Receipt Date: 20170927
  Transmission Date: 20171128
  Serious: Yes (Hospitalization)
  Sender: FDA-Public Use
  Company Number: None

PATIENT
  Age: 62 Year
  Sex: Female

DRUGS (31)
  1. ADDERALL [Suspect]
     Active Substance: AMPHETAMINE ASPARTATE\AMPHETAMINE SULFATE\DEXTROAMPHETAMINE SACCHARATE\DEXTROAMPHETAMINE SULFATE
  2. AZELASTINE [Concomitant]
     Active Substance: AZELASTINE
  3. DILT-CD [Concomitant]
     Active Substance: DILTIAZEM HYDROCHLORIDE
  4. FLUTICASONE. [Concomitant]
     Active Substance: FLUTICASONE
  5. POLYETH GLYC [Concomitant]
     Active Substance: POLYETHYLENE GLYCOLS
  6. SIMVASTATIN. [Concomitant]
     Active Substance: SIMVASTATIN
  7. SPIRONOLACT [Concomitant]
     Active Substance: SPIRONOLACTONE
  8. DEXTROAMPHET SACCHARAT, AMPHET ASPARTATE, DEXTROAMPHET SULFATE AND AMPHET SULFAT [Concomitant]
     Active Substance: AMPHETAMINE ASPARTATE\AMPHETAMINE SULFATE\DEXTROAMPHETAMINE SACCHARATE\DEXTROAMPHETAMINE SULFATE
  9. CIPROFLOXACN [Concomitant]
     Active Substance: CIPROFLOXACIN
  10. LEVOCETIRIZI [Concomitant]
  11. NEURONTIN [Concomitant]
     Active Substance: GABAPENTIN
  12. GILENYA [Suspect]
     Active Substance: FINGOLIMOD HYDROCHLORIDE
     Indication: MULTIPLE SCLEROSIS
     Route: 048
     Dates: start: 201612
  13. BACLOFEN. [Concomitant]
     Active Substance: BACLOFEN
  14. CALCIUM GLUC [Concomitant]
  15. CIPRO [Concomitant]
     Active Substance: CIPROFLOXACIN HYDROCHLORIDE
  16. CITALOPRAM [Concomitant]
     Active Substance: CITALOPRAM HYDROBROMIDE
  17. DILTIAZEM. [Concomitant]
     Active Substance: DILTIAZEM
  18. OMEPRAZOLE. [Concomitant]
     Active Substance: OMEPRAZOLE
  19. CELEBREX [Concomitant]
     Active Substance: CELECOXIB
  20. FUROSEMIDE. [Concomitant]
     Active Substance: FUROSEMIDE
  21. MONTELUKAST [Concomitant]
     Active Substance: MONTELUKAST SODIUM
  22. ZETIA [Concomitant]
     Active Substance: EZETIMIBE
  23. ASPIRIN. [Concomitant]
     Active Substance: ASPIRIN
  24. LEVAQUIN [Concomitant]
     Active Substance: LEVOFLOXACIN
  25. RESTASIS [Concomitant]
     Active Substance: CYCLOSPORINE
  26. ROPINIROLE. [Concomitant]
     Active Substance: ROPINIROLE
  27. TUSSIONEX PENNKINETIC [Concomitant]
     Active Substance: CHLORPHENIRAMINE\HYDROCODONE
  28. AMOX/K CLAV [Concomitant]
     Active Substance: AMOXICILLIN\CLAVULANATE POTASSIUM
  29. PAZEO [Concomitant]
     Active Substance: OLOPATADINE HYDROCHLORIDE
  30. EZETIMBE [Concomitant]
     Active Substance: EZETIMIBE
  31. WATER. [Concomitant]
     Active Substance: WATER

REACTIONS (1)
  - Cholecystectomy [None]

NARRATIVE: CASE EVENT DATE: 20170921
